FAERS Safety Report 16015313 (Version 2)
Quarter: 2019Q1

REPORT INFORMATION
  Report Type: Spontaneous
  Country: US (occurrence: US)
  Receive Date: 20190228
  Receipt Date: 20190311
  Transmission Date: 20190418
  Serious: Yes (Other)
  Sender: FDA-Public Use
  Company Number: US-AMGEN-USASP2019028505

PATIENT
  Age: 71 Year
  Sex: Female

DRUGS (2)
  1. LEVOTHYROXINE. [Concomitant]
     Active Substance: LEVOTHYROXINE
     Indication: THYROID DISORDER
     Dosage: 100 MUG, QD
     Dates: start: 201809
  2. PROLIA [Suspect]
     Active Substance: DENOSUMAB
     Indication: OSTEOPOROSIS POSTMENOPAUSAL
     Dosage: 60 MILLIGRAM, QMO
     Route: 065
     Dates: start: 201805

REACTIONS (7)
  - Thyroid mass [Not Recovered/Not Resolved]
  - Toothache [Not Recovered/Not Resolved]
  - Urinary tract infection [Recovered/Resolved]
  - Oral papule [Not Recovered/Not Resolved]
  - Thyroidectomy [Unknown]
  - Pain in jaw [Not Recovered/Not Resolved]
  - Laryngeal nerve dysfunction [Unknown]

NARRATIVE: CASE EVENT DATE: 2018
